FAERS Safety Report 20409850 (Version 2)
Quarter: 2022Q1

REPORT INFORMATION
  Report Type: Spontaneous
  Country: US (occurrence: None)
  Receive Date: 20220201
  Receipt Date: 20220308
  Transmission Date: 20220423
  Serious: Yes (Death, Other)
  Sender: FDA-Public Use
  Company Number: US-Ultragenyx Pharmaceutical Inc.-US-UGNX-22-00034

PATIENT
  Age: 9 Year
  Sex: Female
  Weight: 32.3 kg

DRUGS (10)
  1. DOJOLVI [Suspect]
     Active Substance: TRIHEPTANOIN
     Indication: Very long-chain acyl-coenzyme A dehydrogenase deficiency
     Dosage: 14 ML, 4 TIMES DAILY VIA G-TUBE
     Dates: start: 20200909
  2. DOJOLVI [Suspect]
     Active Substance: TRIHEPTANOIN
     Route: 048
     Dates: start: 20200810
  3. DOJOLVI [Suspect]
     Active Substance: TRIHEPTANOIN
     Dosage: 14 ML, 4 TIMES DAILY VIA G-TUBE
     Dates: end: 20220115
  4. CARVEDILOL [Concomitant]
     Active Substance: CARVEDILOL
     Indication: Product used for unknown indication
     Dosage: VIA G-TUBE
     Dates: start: 20211007
  5. CHOLECALCIFEROL [Concomitant]
     Active Substance: CHOLECALCIFEROL
     Indication: Product used for unknown indication
     Dosage: 400 IU
     Route: 048
     Dates: start: 20210614
  6. ENALAPRIL [Concomitant]
     Active Substance: ENALAPRIL
     Indication: Product used for unknown indication
     Dosage: VIA G-TUBE,
     Dates: start: 20211007
  7. FERROUS SULFATE [Concomitant]
     Active Substance: FERROUS SULFATE
     Indication: Product used for unknown indication
     Route: 048
     Dates: start: 20210614
  8. RIBOFLAVIN [Concomitant]
     Active Substance: RIBOFLAVIN
     Indication: Product used for unknown indication
     Route: 048
     Dates: start: 20211021
  9. UBIQUINOL [Concomitant]
     Active Substance: UBIQUINOL
     Indication: Product used for unknown indication
     Route: 048
     Dates: start: 20190110
  10. WALNUT OIL [Concomitant]
     Active Substance: WALNUT OIL
     Indication: Product used for unknown indication
     Route: 048
     Dates: start: 20200509

REACTIONS (3)
  - Death [Fatal]
  - Cardiac dysfunction [Unknown]
  - Treatment noncompliance [Unknown]

NARRATIVE: CASE EVENT DATE: 20220115
